FAERS Safety Report 6148021-5 (Version None)
Quarter: 2009Q2

REPORT INFORMATION
  Report Type: 
  Country: None (occurrence: None)
  Receive Date: 20090408
  Receipt Date: 20090326
  Transmission Date: 20091009
  Serious: Yes (Other)
  Sender: FDA-Public Use
  Company Number: AR-ROCHE-537461

PATIENT
  Sex: Male
  Weight: 76 kg

DRUGS (7)
  1. MYCOPHENOLATE MOFETIL [Suspect]
     Indication: RENAL TRANSPLANT
     Dosage: FREQUENCY REPORTED AS TWICE.
     Route: 048
     Dates: start: 20060704
  2. MYCOPHENOLATE MOFETIL [Suspect]
     Dosage: FREQUENCY REPORTED AS DAY.
     Route: 048
     Dates: start: 20071210, end: 20080516
  3. CYCLOSPORINE [Suspect]
     Indication: RENAL TRANSPLANT
     Dosage: FREQUENCY REPORTED AS TWICE.
     Route: 048
     Dates: start: 20051226
  4. CYCLOSPORINE [Suspect]
     Dosage: ROUTE WAS ILLEGIBLE.
     Route: 048
  5. PREDNISONE [Suspect]
     Indication: RENAL TRANSPLANT
     Dosage: FREQUENCY REPORTED AS DAILY.
     Route: 048
     Dates: start: 19910819
  6. EZETIMIBE [Concomitant]
     Dates: start: 20050928
  7. ENALAPRIL [Concomitant]
     Dates: start: 20060405

REACTIONS (1)
  - THYROID CANCER [None]
